FAERS Safety Report 19653731 (Version 3)
Quarter: 2021Q3

REPORT INFORMATION
  Report Type: Spontaneous
  Country: US (occurrence: US)
  Receive Date: 20210803
  Receipt Date: 20210823
  Transmission Date: 20211014
  Serious: No
  Sender: FDA-Public Use
  Company Number: US-PFIZER INC-2021739591

PATIENT
  Age: 57 Year
  Sex: Female

DRUGS (1)
  1. XELJANZ XR [Suspect]
     Active Substance: TOFACITINIB CITRATE
     Indication: PSORIATIC ARTHROPATHY
     Dosage: 11 MG, 1X/DAY
     Route: 048
     Dates: start: 202105

REACTIONS (5)
  - Fatigue [Unknown]
  - Product dose omission issue [Unknown]
  - Pain [Recovering/Resolving]
  - Depressed mood [Recovering/Resolving]
  - Headache [Unknown]

NARRATIVE: CASE EVENT DATE: 202105
